FAERS Safety Report 4292024-2 (Version None)
Quarter: 2004Q1

REPORT INFORMATION
  Report Type: 
  Country: None (occurrence: None)
  Receive Date: 20040126
  Receipt Date: 20031111
  Transmission Date: 20041129
  Serious: No
  Sender: FDA-Public Use
  Company Number: USA031050885

PATIENT
  Age: 79 Year
  Sex: Female
  Weight: 47 kg

DRUGS (18)
  1. FORTEO [Suspect]
     Indication: OSTEOPOROSIS
     Dosage: 20 UG/DAY
     Dates: start: 20030901, end: 20030919
  2. NORVASC [Concomitant]
  3. PRILOSEC [Concomitant]
  4. IRON [Concomitant]
  5. PREDNISONE [Concomitant]
  6. ATACAND [Concomitant]
  7. ARAVA [Concomitant]
  8. ZETIA (EXETIMIBE) [Concomitant]
  9. TRICOR [Concomitant]
  10. NEURONTIN [Concomitant]
  11. LEVOTHYROXINE SODIUM [Concomitant]
  12. . [Concomitant]
  13. . [Concomitant]
  14. . [Concomitant]
  15. . [Concomitant]
  16. . [Concomitant]
  17. . [Concomitant]
  18. . [Concomitant]

REACTIONS (10)
  - ASTHENIA [None]
  - CONSTIPATION [None]
  - DEHYDRATION [None]
  - DIARRHOEA [None]
  - DIFFICULTY IN WALKING [None]
  - FATIGUE [None]
  - FEELING ABNORMAL [None]
  - FULL BLOOD COUNT ABNORMAL [None]
  - NAUSEA [None]
  - WEIGHT DECREASED [None]
